FAERS Safety Report 20711482 (Version 2)
Quarter: 2023Q2

REPORT INFORMATION
  Report Type: Spontaneous
  Country: CA (occurrence: CA)
  Receive Date: 20220414
  Receipt Date: 20230627
  Transmission Date: 20230721
  Serious: Yes (Other)
  Sender: FDA-Public Use
  Company Number: CA-PFIZER INC-202200520026

PATIENT
  Age: 72 Year
  Sex: Male

DRUGS (5)
  1. XELJANZ [Suspect]
     Active Substance: TOFACITINIB CITRATE
     Indication: Colitis ulcerative
     Dosage: 10 MG, 2X/DAY
     Route: 048
     Dates: start: 20200930
  2. XELJANZ [Suspect]
     Active Substance: TOFACITINIB CITRATE
     Dosage: 5 MG, 2X/DAY
     Route: 048
     Dates: start: 202011, end: 20201130
  3. XELJANZ [Suspect]
     Active Substance: TOFACITINIB CITRATE
     Dosage: 10 MG, 2X/DAY
     Route: 048
     Dates: start: 20201130
  4. PREDNISONE [Concomitant]
     Active Substance: PREDNISONE
     Dosage: 22.5 MG, DAILY (1 DF)
     Route: 048
     Dates: start: 2020
  5. SULFASALAZINE [Concomitant]
     Active Substance: SULFASALAZINE
     Dosage: 1 DF UNKNOWN DOSE
     Route: 065

REACTIONS (4)
  - Post-traumatic stress disorder [Unknown]
  - Condition aggravated [Not Recovered/Not Resolved]
  - Colectomy [Unknown]
  - Anxiety [Not Recovered/Not Resolved]
